FAERS Safety Report 6335360-8 (Version None)
Quarter: 2009Q3

REPORT INFORMATION
  Report Type: 
  Country: None (occurrence: None)
  Receive Date: 20090831
  Receipt Date: 20090818
  Transmission Date: 20100115
  Serious: Yes (Life-Threatening, Hospitalization)
  Sender: FDA-Public Use
  Company Number: DE-ELI_LILLY_AND_COMPANY-DE200908003870

PATIENT
  Sex: Male

DRUGS (10)
  1. CYMBALTA [Suspect]
     Indication: DEPRESSION SUICIDAL
     Dosage: 30 MG, DAILY (1/D)
     Route: 048
     Dates: start: 20090522, end: 20090706
  2. OMEPRAZOL [Concomitant]
     Dosage: 40 MG, UNKNOWN
     Route: 065
  3. KALINOR [Concomitant]
     Dosage: UNK, 2/D
     Route: 065
  4. BELOC ZOK [Concomitant]
     Dosage: 1 D/F, UNKNOWN
     Route: 065
  5. ENALAPRIL MALEATE [Concomitant]
     Dosage: 10 MG, DAILY (1/D) 5-0-5
     Route: 065
  6. CLEXANE [Concomitant]
     Dosage: 0.4 ML, UNKNOWN
     Route: 065
  7. VOLTAREN [Concomitant]
     Dosage: 150 MG, DAILY (1/D) 75-0-75
     Route: 065
  8. FOLIC ACID [Concomitant]
     Dosage: 20 MG, DAILY (1/D)
     Route: 065
  9. MIRTAZAPINE [Concomitant]
     Dosage: 30 MG, DAILY (1/D)
     Route: 065
     Dates: end: 20090617
  10. MIRTAZAPINE [Concomitant]
     Dosage: 15 MG, DAILY (1/D)
     Route: 065
     Dates: start: 20090618, end: 20090701

REACTIONS (4)
  - BLOOD BILIRUBIN INCREASED [None]
  - DRUG TOXICITY [None]
  - LIVER FUNCTION TEST ABNORMAL [None]
  - OFF LABEL USE [None]
